FAERS Safety Report 8222013-4 (Version None)
Quarter: 2012Q1

REPORT INFORMATION
  Report Type: 
  Country: None (occurrence: None)
  Receive Date: 20120320
  Receipt Date: 20120314
  Transmission Date: 20120608
  Serious: Yes (Other)
  Sender: FDA-Public Use
  Company Number: CZ-US-EMD SERONO, INC.-7119443

PATIENT
  Age: 31 Year
  Sex: Female

DRUGS (4)
  1. CETROTIDE [Suspect]
     Indication: INFERTILITY
     Route: 058
     Dates: start: 20120313
  2. PREDNISONE [Concomitant]
     Indication: PRODUCT USED FOR UNKNOWN INDICATION
  3. ANNOPYRIN (ANOPYRIN) [Concomitant]
     Indication: PRODUCT USED FOR UNKNOWN INDICATION
  4. GONAL-F [Concomitant]
     Indication: PRODUCT USED FOR UNKNOWN INDICATION

REACTIONS (5)
  - INJECTION SITE ERYTHEMA [None]
  - LOSS OF CONSCIOUSNESS [None]
  - TINNITUS [None]
  - CHILLS [None]
  - PARAESTHESIA [None]
